FAERS Safety Report 5856097-5 (Version None)
Quarter: 2008Q3

REPORT INFORMATION
  Report Type: 
  Country: None (occurrence: None)
  Receive Date: 20080818
  Receipt Date: 20070913
  Transmission Date: 20090109
  Serious: No
  Sender: FDA-Public Use
  Company Number: 07H-163-0313206-00

PATIENT
  Age: 63 Year
  Sex: Female
  Weight: 67 kg

DRUGS (2)
  1. VANCOMYCIN HCL [Suspect]
     Dosage: 750 MG, 2 IN 1 D, INTRAVENOUS
     Route: 042
     Dates: start: 20070101, end: 20070101
  2. VANCOMYCIN HCL [Suspect]
     Dosage: 750 MG, 2 IN 1 D, INTRAVENOUS
     Route: 042
     Dates: start: 20070804, end: 20070831

REACTIONS (1)
  - RASH [None]
